FAERS Safety Report 9704217 (Version 3)
Quarter: 2013Q4

REPORT INFORMATION
  Report Type: Spontaneous
  Country: CA (occurrence: CA)
  Receive Date: 20131122
  Receipt Date: 20131205
  Transmission Date: 20140711
  Serious: Yes (Other)
  Sender: FDA-Public Use
  Company Number: CA-009507513-1310CAN010729

PATIENT
  Sex: Female

DRUGS (3)
  1. VICTRELIS TRIPLE [Suspect]
     Indication: CHRONIC HEPATITIS C
     Dosage: 800 MG, TID
     Route: 065
     Dates: start: 20130308, end: 20130919
  2. VICTRELIS TRIPLE [Suspect]
     Dosage: 1000 MG, DAILY
     Route: 065
     Dates: start: 20130308, end: 20130919
  3. VICTRELIS TRIPLE [Suspect]
     Dosage: 120 MICROGRAM, WEEKLY
     Route: 065
     Dates: start: 20130308, end: 20130919

REACTIONS (2)
  - Abortion induced [Unknown]
  - Exposure during pregnancy [Recovered/Resolved]
